FAERS Safety Report 8208353-3 (Version None)
Quarter: 2012Q1

REPORT INFORMATION
  Report Type: 
  Country: None (occurrence: None)
  Receive Date: 20120314
  Receipt Date: 20120307
  Transmission Date: 20120608
  Serious: Yes (Death, Hospitalization)
  Sender: FDA-Public Use
  Company Number: JP-GENZYME-THYM-1001599

PATIENT
  Sex: Male
  Weight: 60 kg

DRUGS (14)
  1. THYMOGLOBULIN [Suspect]
     Dosage: 75 MG, QD
     Route: 042
     Dates: start: 20091104, end: 20091104
  2. PREDNISOLONE [Concomitant]
     Indication: GRAFT VERSUS HOST DISEASE
     Dosage: UNK
     Route: 065
     Dates: start: 20091129, end: 20100531
  3. LANSOPRAZOLE [Concomitant]
     Indication: PROPHYLAXIS AGAINST GASTROINTESTINAL ULCER
     Dosage: UNK
     Dates: start: 20091106
  4. CYCLOPHOSPHAMIDE [Concomitant]
     Indication: BONE MARROW CONDITIONING REGIMEN
     Dosage: UNK
     Dates: start: 20090701
  5. BROTIZOLAM [Concomitant]
     Indication: INSOMNIA
     Dosage: UNK
     Dates: start: 20091106
  6. THYMOGLOBULIN [Suspect]
     Indication: ACUTE GRAFT VERSUS HOST DISEASE
     Dosage: 75 MG, QD
     Route: 042
     Dates: start: 20091102, end: 20091102
  7. METHYLPREDNISOLONE SODIUM SUCCINATE [Concomitant]
     Indication: GRAFT VERSUS HOST DISEASE
     Dosage: UNK
     Dates: start: 20091028, end: 20091128
  8. METHYLPREDNISOLONE SODIUM SUCCINATE [Concomitant]
     Dosage: UNK
     Dates: start: 20100601
  9. TACROLIMUS [Concomitant]
     Indication: GRAFT VERSUS HOST DISEASE
  10. THYMOGLOBULIN [Suspect]
     Dosage: 75 MG, QD
     Route: 042
     Dates: start: 20091106, end: 20091106
  11. TACROLIMUS [Concomitant]
     Indication: PROPHYLAXIS AGAINST GRAFT VERSUS HOST DISEASE
     Dosage: UNK
     Dates: start: 20090715
  12. TACROLIMUS [Concomitant]
     Indication: BONE MARROW CONDITIONING REGIMEN
  13. METHOTREXATE [Concomitant]
     Indication: PROPHYLAXIS AGAINST GRAFT VERSUS HOST DISEASE
  14. MYCOPHENOLATE MOFETIL [Concomitant]
     Indication: GRAFT VERSUS HOST DISEASE
     Dosage: UNK
     Route: 065
     Dates: start: 20091117

REACTIONS (7)
  - PNEUMONIA ASPIRATION [None]
  - PLATELET COUNT DECREASED [None]
  - BRONCHOPULMONARY ASPERGILLOSIS [None]
  - CYTOMEGALOVIRUS TEST POSITIVE [None]
  - CONDITION AGGRAVATED [None]
  - ANAEMIA [None]
  - DEPRESSION [None]
